FAERS Safety Report 5349755-2 (Version None)
Quarter: 2007Q2

REPORT INFORMATION
  Report Type: 
  Country: None (occurrence: None)
  Receive Date: 20070607
  Receipt Date: 20070529
  Transmission Date: 20071010
  Serious: Yes (Other)
  Sender: FDA-Public Use
  Company Number: US-PFIZER INC-2007038966

PATIENT
  Sex: Female

DRUGS (5)
  1. SOLU-MEDROL [Suspect]
     Route: 042
     Dates: start: 20070301, end: 20070301
  2. REBIF [Suspect]
     Indication: MULTIPLE SCLEROSIS
     Dosage: DAILY DOSE:44MCG
     Route: 058
  3. METFORMIN HCL [Concomitant]
     Indication: DIABETES MELLITUS
  4. GLYBURIDE [Concomitant]
     Indication: DIABETES MELLITUS
     Dates: start: 20010101
  5. ENALAPRIL MALEATE [Concomitant]
     Indication: PROPHYLAXIS

REACTIONS (3)
  - HYPERGLYCAEMIA [None]
  - MULTIPLE SCLEROSIS RELAPSE [None]
  - UPPER RESPIRATORY TRACT INFECTION [None]
